FAERS Safety Report 8596783 (Version 4)
Quarter: 2014Q2

REPORT INFORMATION
  Report Type: Spontaneous
  Country: US (occurrence: US)
  Receive Date: 20120605
  Receipt Date: 20140404
  Transmission Date: 20141212
  Serious: Yes (Hospitalization, Disabling, Other)
  Sender: FDA-Public Use
  Company Number: US-ASTRAZENECA-2012SE35664

PATIENT
  Age: 34 Year
  Sex: Male
  Weight: 54.4 kg

DRUGS (16)
  1. NEXIUM [Suspect]
     Indication: GASTROOESOPHAGEAL REFLUX DISEASE
     Route: 048
     Dates: start: 2004
  2. NEXIUM [Suspect]
     Indication: GASTROOESOPHAGEAL REFLUX DISEASE
     Route: 048
     Dates: start: 20040325
  3. NEXIUM [Suspect]
     Indication: GASTROOESOPHAGEAL REFLUX DISEASE
     Route: 048
     Dates: start: 201305
  4. NEXIUM [Suspect]
     Indication: GASTROOESOPHAGEAL REFLUX DISEASE
     Route: 048
     Dates: start: 2004
  5. OMEPRAZOLE [Suspect]
     Route: 048
  6. OMEPRAZOLE [Suspect]
     Route: 048
  7. ASPIRIN [Concomitant]
     Route: 048
  8. EPIVIR [Concomitant]
     Indication: HIV INFECTION
     Route: 048
     Dates: start: 20040325
  9. FERROUS SULF EC [Concomitant]
     Route: 048
  10. FOLIC ACID [Concomitant]
     Route: 048
  11. LEVAQUIN [Concomitant]
     Route: 048
  12. VIRACEPT [Concomitant]
     Indication: HIV INFECTION
     Route: 048
     Dates: start: 20040325
  13. VIREAD [Concomitant]
     Route: 048
  14. ZIAGEN [Concomitant]
     Indication: HIV INFECTION
     Dates: start: 20040325
  15. OXYCODONE [Concomitant]
     Indication: PAIN
  16. MILK THISTLE [Concomitant]

REACTIONS (19)
  - Hip fracture [Unknown]
  - Critical illness polyneuropathy [Unknown]
  - Gait disturbance [Unknown]
  - Acquired immunodeficiency syndrome [Unknown]
  - Cardiac disorder [Unknown]
  - Decreased immune responsiveness [Unknown]
  - Staphylococcal infection [Unknown]
  - Fall [Unknown]
  - HIV infection [Unknown]
  - Bronchitis [Unknown]
  - Joint dislocation [Unknown]
  - Osteoporosis [Unknown]
  - Multiple fractures [Unknown]
  - Finger deformity [Unknown]
  - Musculoskeletal pain [Unknown]
  - Arthralgia [Unknown]
  - Osteoarthritis [Unknown]
  - Osteopenia [Unknown]
  - Upper limb fracture [Unknown]
